FAERS Safety Report 8132581-9 (Version None)
Quarter: 2012Q1

REPORT INFORMATION
  Report Type: 
  Country: None (occurrence: None)
  Receive Date: 20120208
  Receipt Date: 20120124
  Transmission Date: 20120608
  Serious: Yes (Disabling)
  Sender: FDA-Public Use
  Company Number: 2012BN000043

PATIENT
  Age: 12 Year
  Sex: Female

DRUGS (6)
  1. ETOPOSIDE [Concomitant]
  2. ANESTHETICS, GENERAL [Concomitant]
  3. CARBOPLATIN [Concomitant]
  4. VINCRISTINE [Concomitant]
  5. MELPHALAN HYDROCHLORIDE [Suspect]
     Indication: RETINOBLASTOMA
     Dosage: 7.5 MG; IART
  6. HEPARIN [Concomitant]

REACTIONS (2)
  - IIIRD NERVE PARALYSIS [None]
  - EYE EXCISION [None]
